FAERS Safety Report 8246039-X (Version None)
Quarter: 2012Q1

REPORT INFORMATION
  Report Type: 
  Country: None (occurrence: None)
  Receive Date: 20120330
  Receipt Date: 20120319
  Transmission Date: 20120608
  Serious: No
  Sender: FDA-Public Use
  Company Number: KR-JNJFOC-20120309361

PATIENT
  Age: 59 Year
  Sex: Male

DRUGS (2)
  1. DURAGESIC-100 [Suspect]
     Route: 062
     Dates: start: 20120318, end: 20120319
  2. DURAGESIC-100 [Suspect]
     Indication: PAIN
     Dosage: HALF A PATCH
     Route: 062
     Dates: start: 20120201

REACTIONS (4)
  - DRUG INEFFECTIVE [None]
  - EAR PRURITUS [None]
  - WRONG TECHNIQUE IN DRUG USAGE PROCESS [None]
  - FEELING HOT [None]
